FAERS Safety Report 4589271-9 (Version None)
Quarter: 2005Q1

REPORT INFORMATION
  Report Type: 
  Country: None (occurrence: None)
  Receive Date: 20050217
  Receipt Date: 20050217
  Transmission Date: 20050727
  Serious: Yes (Other)
  Sender: FDA-Public Use
  Company Number: None

PATIENT
  Age: 22 Year
  Sex: Female

DRUGS (2)
  1. MARCAINE [Suspect]
     Indication: CAESAREAN SECTION
     Dosage: 2ML ONE TIME INTRAVENOU
     Route: 042
     Dates: start: 20050212, end: 20050212
  2. MARCAINE [Suspect]
     Indication: SPINAL ANAESTHESIA
     Dosage: 2ML ONE TIME INTRAVENOU
     Route: 042
     Dates: start: 20050212, end: 20050212

REACTIONS (1)
  - DRUG INEFFECTIVE [None]
